FAERS Safety Report 7203752-0 (Version None)
Quarter: 2010Q4

REPORT INFORMATION
  Report Type: 
  Country: None (occurrence: None)
  Receive Date: 20101230
  Receipt Date: 20101219
  Transmission Date: 20110411
  Serious: Yes (Hospitalization)
  Sender: FDA-Public Use
  Company Number: PHHY2009CA25963

PATIENT
  Sex: Female

DRUGS (6)
  1. EXJADE [Suspect]
     Indication: MYELODYSPLASTIC SYNDROME
     Dosage: 500 MG, QD
     Route: 048
     Dates: start: 20080401
  2. EXJADE [Suspect]
     Indication: IRON OVERLOAD
     Dosage: 750 MG, UNK
     Dates: end: 20090827
  3. EXJADE [Suspect]
     Dosage: 1000 MG, QD
     Route: 048
     Dates: start: 20090501
  4. CARBOCAL D [Concomitant]
  5. VITAMIN B1 TAB [Concomitant]
  6. VITAMIN E [Concomitant]

REACTIONS (8)
  - ABDOMINAL PAIN [None]
  - BONE MARROW TRANSPLANT [None]
  - BURNING SENSATION [None]
  - DYSPEPSIA [None]
  - GASTROOESOPHAGEAL REFLUX DISEASE [None]
  - PHOTOPSIA [None]
  - SERUM FERRITIN INCREASED [None]
  - TREATMENT NONCOMPLIANCE [None]
